FAERS Safety Report 24046929 (Version 1)
Quarter: 2024Q3

REPORT INFORMATION
  Report Type: Spontaneous
  Country: US (occurrence: None)
  Receive Date: 20240702
  Receipt Date: 20240702
  Transmission Date: 20241017
  Serious: Yes (Hospitalization)
  Sender: Public
  Company Number: None

PATIENT
  Age: 13 Year
  Sex: Female
  Weight: 68.4 kg

DRUGS (5)
  1. ABATACEPT [Suspect]
     Active Substance: ABATACEPT
     Indication: Juvenile idiopathic arthritis
     Dosage: OTHER FREQUENCY : ONCE A WEEK;?
     Route: 058
     Dates: start: 20230502, end: 20230718
  2. ABATACEPT [Suspect]
     Active Substance: ABATACEPT
     Indication: Psoriatic arthropathy
  3. METHIMAZOLE [Concomitant]
     Active Substance: METHIMAZOLE
     Dates: start: 20200714
  4. INSULIN LISPRO [Concomitant]
     Active Substance: INSULIN LISPRO
     Dates: start: 20221107
  5. INSULIN GLARGINE [Concomitant]
     Active Substance: INSULIN GLARGINE
     Dates: start: 20221107

REACTIONS (6)
  - Diabetic ketoacidosis [None]
  - Type 1 diabetes mellitus [None]
  - Abdominal pain [None]
  - Pain in jaw [None]
  - Blood sodium decreased [None]
  - Product dose omission issue [None]

NARRATIVE: CASE EVENT DATE: 20230919
